FAERS Safety Report 18793206 (Version 1)
Quarter: 2021Q1

REPORT INFORMATION
  Report Type: Spontaneous
  Country: FR (occurrence: FR)
  Receive Date: 20210127
  Receipt Date: 20210127
  Transmission Date: 20210419
  Serious: Yes (Death)
  Sender: FDA-Public Use
  Company Number: FR-VISTAPHARM, INC.-VER202101-000064

PATIENT
  Age: 58 Year
  Sex: Male
  Weight: 56 kg

DRUGS (8)
  1. BROMAZEPAM [Suspect]
     Active Substance: BROMAZEPAM
     Indication: NEURALGIA
     Dosage: 1 TABLET OF 6 MG (IN THE EVENING)
     Dates: start: 2017
  2. HYDROCODONE AND ACETAMINOPHEN [Suspect]
     Active Substance: ACETAMINOPHEN\HYDROCODONE
     Indication: DEPRESSIVE SYMPTOM
  3. CODEINE [Suspect]
     Active Substance: CODEINE
     Indication: PRODUCT USED FOR UNKNOWN INDICATION
     Dosage: UNKNOWN
  4. GABAPENTIN. [Suspect]
     Active Substance: GABAPENTIN
     Indication: NEURALGIA
     Dosage: 2.700 MG/DAY (1 TABLET OF 800 MG AND 1 CAPSULE OF 100 MG, EACH MORNING, NOON AND EVENING)
     Dates: start: 2017
  5. BROMAZEPAM [Suspect]
     Active Substance: BROMAZEPAM
     Indication: DEPRESSIVE SYMPTOM
  6. GABAPENTIN. [Suspect]
     Active Substance: GABAPENTIN
     Dosage: UNKNOWN (DOSE INCREASED)
     Dates: start: 2019
  7. HYDROCODONE AND ACETAMINOPHEN [Suspect]
     Active Substance: ACETAMINOPHEN\HYDROCODONE
     Indication: NEURALGIA
     Dosage: 1000 MG (WHEN NEEDED)
     Dates: start: 2017
  8. GABAPENTIN. [Suspect]
     Active Substance: GABAPENTIN
     Indication: DEPRESSIVE SYMPTOM
     Dosage: UNKNOWN (DOSE INCREASED)
     Dates: start: 2018

REACTIONS (2)
  - Toxicity to various agents [Fatal]
  - Intentional product misuse [Fatal]
